FAERS Safety Report 8687268 (Version 2)
Quarter: 2013Q1

REPORT INFORMATION
  Report Type: Spontaneous
  Country: US (occurrence: US)
  Receive Date: 20120727
  Receipt Date: 20130104
  Transmission Date: 20140127
  Serious: Yes (Hospitalization)
  Sender: FDA-Public Use
  Company Number: US-BAYER-2012-072297

PATIENT
  Age: 22 Year
  Sex: Female

DRUGS (6)
  1. YAZ [Suspect]
     Dosage: UNK
     Dates: start: 200901, end: 20091001
  2. LITHIUM CARBONATE [Concomitant]
     Route: 048
  3. ALBUTEROL [Concomitant]
  4. ALLEGRA [Concomitant]
     Route: 048
  5. VITAMIN C [Concomitant]
     Dosage: 500 MG, UNK
     Route: 048
  6. URELLE [Concomitant]

REACTIONS (1)
  - Pulmonary embolism [None]
